FAERS Safety Report 13375635 (Version 2)
Quarter: 2017Q2

REPORT INFORMATION
  Report Type: Report from Study
  Country: None (occurrence: US)
  Receive Date: 20170328
  Receipt Date: 20170608
  Transmission Date: 20170830
  Serious: Yes (Other)
  Sender: FDA-Public Use
  Company Number: US-ABBVIE-17K-163-1921168-00

PATIENT
  Age: 46 Year
  Sex: Female

DRUGS (2)
  1. HUMIRA [Suspect]
     Active Substance: ADALIMUMAB
     Route: 058
     Dates: start: 2017
  2. HUMIRA [Suspect]
     Active Substance: ADALIMUMAB
     Indication: COLITIS ULCERATIVE
     Route: 058
     Dates: end: 2017

REACTIONS (10)
  - Gastrooesophageal reflux disease [Unknown]
  - Colitis [Unknown]
  - Hernia [Unknown]
  - Oropharyngeal pain [Unknown]
  - Device issue [Unknown]
  - Skin cancer [Unknown]
  - Pain [Unknown]
  - Influenza like illness [Recovering/Resolving]
  - Haematochezia [Not Recovered/Not Resolved]
  - Infection [Unknown]

NARRATIVE: CASE EVENT DATE: 2017
